FAERS Safety Report 8804796 (Version 1)
Quarter: 2012Q4

REPORT INFORMATION
  Report Type: Spontaneous
  Country: US (occurrence: None)
  Receive Date: 20120918
  Receipt Date: 20120918
  Transmission Date: 20130627
  Serious: Yes (Other)
  Sender: FDA-Public Use
  Company Number: None

PATIENT
  Age: 62 Year
  Sex: Male

DRUGS (1)
  1. TRIAMCINOLONE [Suspect]
     Indication: DIABETIC MACULAR EDEMA
     Route: 031
     Dates: start: 20091104, end: 20120906

REACTIONS (1)
  - Endophthalmitis [None]
